FAERS Safety Report 23933840 (Version 1)
Quarter: 2024Q2

REPORT INFORMATION
  Report Type: Spontaneous
  Country: GR (occurrence: GR)
  Receive Date: 20240603
  Receipt Date: 20240603
  Transmission Date: 20240715
  Serious: Yes (Other)
  Sender: FDA-Public Use
  Company Number: GR-ROCHE-3565478

PATIENT
  Sex: Female
  Weight: 3.11 kg

DRUGS (4)
  1. PREDNISOLONE [Suspect]
     Active Substance: PREDNISOLONE
     Indication: Product used for unknown indication
     Route: 064
  2. FONDAPARINUX [Concomitant]
     Active Substance: FONDAPARINUX
     Indication: Product used for unknown indication
     Route: 064
  3. ASPIRIN [Concomitant]
     Active Substance: ASPIRIN
     Indication: Product used for unknown indication
     Route: 064
  4. RITUXIMAB [Suspect]
     Active Substance: RITUXIMAB
     Indication: Product used for unknown indication
     Route: 064

REACTIONS (2)
  - Foetal distress syndrome [Unknown]
  - Foetal exposure during pregnancy [Unknown]
